FAERS Safety Report 12419865 (Version 2)
Quarter: 2016Q2

REPORT INFORMATION
  Report Type: Spontaneous
  Country: US (occurrence: US)
  Receive Date: 20160531
  Receipt Date: 20160630
  Transmission Date: 20160815
  Serious: No
  Sender: FDA-Public Use
  Company Number: US-GLAXOSMITHKLINE-US2016067005

PATIENT
  Age: 67 Year
  Sex: Male

DRUGS (5)
  1. FUROSEMIDE. [Concomitant]
     Active Substance: FUROSEMIDE
  2. VENTOLIN HFA [Suspect]
     Active Substance: ALBUTEROL SULFATE
     Indication: ASTHMA
     Dosage: 1 PUFF(S), PRN
     Route: 055
     Dates: start: 201604
  3. BCG INJECTION [Concomitant]
  4. CELEBREX [Concomitant]
     Active Substance: CELECOXIB
  5. SYNTHROID [Concomitant]
     Active Substance: LEVOTHYROXINE SODIUM

REACTIONS (9)
  - Device use error [Unknown]
  - Asthma [Unknown]
  - Product quality issue [Unknown]
  - Discomfort [Recovered/Resolved]
  - Respiratory tract congestion [Recovered/Resolved]
  - Drug ineffective [Unknown]
  - Overdose [Recovered/Resolved]
  - Dyspnoea [Recovered/Resolved]
  - Inflammation [Recovered/Resolved]

NARRATIVE: CASE EVENT DATE: 20160512
